FAERS Safety Report 15487242 (Version 1)
Quarter: 2018Q4

REPORT INFORMATION
  Report Type: Report from Study
  Country: FR (occurrence: FR)
  Receive Date: 20181011
  Receipt Date: 20181011
  Transmission Date: 20190205
  Serious: Yes (Death, Hospitalization, Other)
  Sender: FDA-Public Use
  Company Number: FR-ROCHE-2066354

PATIENT
  Age: 78 Year
  Sex: Female
  Weight: 66.5 kg

DRUGS (8)
  1. FLUOROURACIL. [Suspect]
     Active Substance: FLUOROURACIL
     Indication: NEUROENDOCRINE CARCINOMA
     Route: 065
     Dates: start: 20171018, end: 20171207
  2. BEVACIZUMAB. [Suspect]
     Active Substance: BEVACIZUMAB
     Indication: NEUROENDOCRINE CARCINOMA
     Dosage: FOUR INJECTIONS, (ON SAME DAY DOSE 320MG)
     Route: 042
     Dates: start: 20171018, end: 20171115
  3. BEVACIZUMAB. [Suspect]
     Active Substance: BEVACIZUMAB
     Route: 042
     Dates: start: 20171115, end: 20171115
  4. IRINOTECAN [Concomitant]
     Active Substance: IRINOTECAN
     Indication: NEUROENDOCRINE CARCINOMA
     Route: 065
     Dates: start: 20171018, end: 20171207
  5. RAMIPRIL. [Concomitant]
     Active Substance: RAMIPRIL
  6. ACETYLSALICYLIC ACID [Concomitant]
     Active Substance: ASPIRIN
  7. AMLODIPINE [Concomitant]
     Active Substance: AMLODIPINE BESYLATE
  8. CALCIUM FOLINATE [Concomitant]
     Active Substance: LEUCOVORIN CALCIUM
     Indication: NEUROENDOCRINE CARCINOMA
     Route: 065
     Dates: start: 20171018, end: 20171207

REACTIONS (7)
  - Inflammation [Recovered/Resolved]
  - Pyrexia [Recovered/Resolved]
  - Disease progression [Fatal]
  - Asthenia [Recovered/Resolved with Sequelae]
  - Fatigue [Fatal]
  - Nausea [Recovered/Resolved with Sequelae]
  - Back pain [Recovered/Resolved]

NARRATIVE: CASE EVENT DATE: 20171102
